FAERS Safety Report 13523005 (Version 2)
Quarter: 2017Q3

REPORT INFORMATION
  Report Type: Spontaneous
  Country: US (occurrence: US)
  Receive Date: 20170508
  Receipt Date: 20170810
  Transmission Date: 20171127
  Serious: No
  Sender: FDA-Public Use
  Company Number: US-VIFOR (INTERNATIONAL) INC.-VIT-2017-00794

PATIENT
  Sex: Female
  Weight: 86 kg

DRUGS (16)
  1. CRESTOR [Concomitant]
     Active Substance: ROSUVASTATIN CALCIUM
  2. DIOVAN HCT [Concomitant]
     Active Substance: HYDROCHLOROTHIAZIDE\VALSARTAN
  3. IRON [Concomitant]
     Active Substance: IRON
  4. ADALAT CC [Concomitant]
     Active Substance: NIFEDIPINE
  5. COENZYME Q10 [Concomitant]
     Active Substance: UBIDECARENONE
  6. ACETYLSALICYLIC ACID [Concomitant]
     Active Substance: ASPIRIN
  7. NIFEDIPINE. [Concomitant]
     Active Substance: NIFEDIPINE
  8. TOPROL XL [Concomitant]
     Active Substance: METOPROLOL SUCCINATE
  9. ASCORBIC ACID. [Concomitant]
     Active Substance: ASCORBIC ACID
  10. AMITRIPTYLINE HYDROCHLORIDE. [Concomitant]
     Active Substance: AMITRIPTYLINE HYDROCHLORIDE
  11. SODIUM BICARBONATE. [Concomitant]
     Active Substance: SODIUM BICARBONATE
  12. COLECALCIFEROL [Concomitant]
     Active Substance: CHOLECALCIFEROL
  13. FEMARA [Concomitant]
     Active Substance: LETROZOLE
  14. PEPCID [Concomitant]
     Active Substance: FAMOTIDINE
  15. ZOVIRAX [Concomitant]
     Active Substance: ACYCLOVIR
  16. VELTASSA [Suspect]
     Active Substance: PATIROMER
     Indication: HYPERKALAEMIA
     Route: 048
     Dates: start: 20160510

REACTIONS (1)
  - Blood potassium increased [Recovered/Resolved]
